FAERS Safety Report 9668858 (Version 3)
Quarter: 2013Q4

REPORT INFORMATION
  Report Type: Report from Study
  Country: VE (occurrence: VE)
  Receive Date: 20131105
  Receipt Date: 20131121
  Transmission Date: 20140711
  Serious: Yes (Other)
  Sender: FDA-Public Use
  Company Number: PHHY2013VE120964

PATIENT
  Age: 38 Year
  Sex: Female

DRUGS (5)
  1. XOLAIR [Suspect]
     Indication: ASTHMA
     Dosage: 150 MG, EVERY 15 DAYS
     Route: 058
     Dates: start: 201308
  2. XOLAIR [Suspect]
     Dosage: 300 MG, QMO
     Route: 058
  3. MIFLONIDE [Suspect]
     Indication: ASTHMA
     Dosage: 200 UG, EVERY 12 HOURS
     Dates: start: 201307
  4. ONBREZ [Suspect]
     Indication: ASTHMA
     Dosage: 150 UG, Q12H
     Dates: start: 201307
  5. AIRON [Concomitant]
     Indication: ASTHMA
     Dosage: 10 MG, DAILY
     Route: 048
     Dates: start: 201307

REACTIONS (4)
  - Asthma [Not Recovered/Not Resolved]
  - Feeling abnormal [Unknown]
  - Drug prescribing error [Unknown]
  - Drug ineffective [Unknown]
